FAERS Safety Report 4794465-3 (Version None)
Quarter: 2005Q4

REPORT INFORMATION
  Report Type: 
  Country: None (occurrence: None)
  Receive Date: 20051011
  Receipt Date: 20050929
  Transmission Date: 20060501
  Serious: Yes (Hospitalization)
  Sender: FDA-Public Use
  Company Number: US-BRISTOL-MYERS SQUIBB COMPANY-13126750

PATIENT
  Age: 52 Year
  Sex: Female
  Weight: 134 kg

DRUGS (4)
  1. ABILIFY [Suspect]
     Indication: SCHIZOAFFECTIVE DISORDER
     Route: 048
     Dates: start: 20031101, end: 20050701
  2. ABILIFY [Suspect]
     Indication: DEPRESSION
     Route: 048
     Dates: start: 20031101, end: 20050701
  3. ZYPREXA [Concomitant]
     Indication: SCHIZOAFFECTIVE DISORDER
     Dates: start: 19970201, end: 20031101
  4. ZYPREXA [Concomitant]
     Indication: DEPRESSION
     Dates: start: 19970201, end: 20031101

REACTIONS (1)
  - CARDIAC DISORDER [None]
